FAERS Safety Report 7414538-6 (Version None)
Quarter: 2011Q2

REPORT INFORMATION
  Report Type: 
  Country: None (occurrence: None)
  Receive Date: 20110414
  Receipt Date: 20110405
  Transmission Date: 20111010
  Serious: Yes (Life-Threatening, Other)
  Sender: FDA-Public Use
  Company Number: JP-JNJFOC-20110401790

PATIENT
  Sex: Female

DRUGS (14)
  1. HEPARIN [Concomitant]
     Indication: ATRIAL FIBRILLATION
     Route: 041
  2. PARIET [Concomitant]
     Indication: GASTRITIS
     Route: 048
  3. CRAVIT [Suspect]
     Indication: PYREXIA
     Route: 048
  4. DIGOXIN [Concomitant]
     Route: 065
  5. LASIX [Concomitant]
     Indication: CARDIAC FAILURE CHRONIC
     Route: 042
  6. NITROL [Concomitant]
     Indication: CARDIAC FAILURE CHRONIC
     Route: 041
  7. BLOPRESS [Concomitant]
     Indication: CARDIAC FAILURE CHRONIC
     Dosage: HALF DOSE
     Route: 048
  8. ALOSITOL [Concomitant]
     Indication: HYPERURICAEMIA
     Dosage: HALF DOSE
     Route: 048
  9. OMEPRAL [Concomitant]
     Route: 065
  10. SOLITA T3 [Concomitant]
     Route: 065
  11. ADALAT [Concomitant]
     Indication: HYPERTENSION
     Dosage: HALF DOSE
     Route: 048
  12. DIGOXIN [Concomitant]
     Indication: CARDIAC FAILURE CHRONIC
     Dosage: HALF DOSE
     Route: 065
  13. CRAVIT [Suspect]
     Indication: INFLAMMATION
     Route: 048
  14. MERCAZOLE [Concomitant]
     Indication: HYPERTHYROIDISM
     Route: 048

REACTIONS (4)
  - VENTRICULAR EXTRASYSTOLES [None]
  - VENTRICULAR TACHYCARDIA [None]
  - LOSS OF CONSCIOUSNESS [None]
  - ELECTROCARDIOGRAM QT PROLONGED [None]
